FAERS Safety Report 23343634 (Version 1)
Quarter: 2023Q4

REPORT INFORMATION
  Report Type: Spontaneous
  Country: US (occurrence: None)
  Receive Date: 20231227
  Receipt Date: 20231227
  Transmission Date: 20240110
  Serious: Yes (Death, Life-Threatening, Disabling)
  Sender: FDA-Public Use
  Company Number: None

PATIENT
  Age: 80 Year
  Sex: Male

DRUGS (2)
  1. HALOPERIDOL DECANOATE [Suspect]
     Active Substance: HALOPERIDOL DECANOATE
     Indication: Aggression
     Dosage: OTHER QUANTITY : 1 DOSE;?FREQUENCY : AS NEEDED;?
     Route: 048
     Dates: start: 20230923, end: 20231109
  2. HALOPERIDOL DECANOATE [Suspect]
     Active Substance: HALOPERIDOL DECANOATE
     Indication: Dementia Alzheimer^s type

REACTIONS (3)
  - Hypophagia [None]
  - Akinesia [None]
  - Hyporesponsive to stimuli [None]

NARRATIVE: CASE EVENT DATE: 20230923
